FAERS Safety Report 6615685-9 (Version None)
Quarter: 2010Q1

REPORT INFORMATION
  Report Type: 
  Country: None (occurrence: None)
  Receive Date: 20100305
  Receipt Date: 20100219
  Transmission Date: 20100710
  Serious: Yes (Other)
  Sender: FDA-Public Use
  Company Number: SA-BAYER-201017263GPV

PATIENT
  Age: 2 Year
  Sex: Female
  Weight: 7 kg

DRUGS (7)
  1. FLUDARABINE [Suspect]
     Indication: CONGENITAL APLASTIC ANAEMIA
     Route: 042
  2. CYCLOPHOSPHAMIDE [Suspect]
     Indication: STEM CELL TRANSPLANT
     Route: 042
  3. RABBIT ATG [Suspect]
     Indication: STEM CELL TRANSPLANT
     Route: 042
  4. MYCOPHENOLATE MOFETIL [Concomitant]
     Indication: PROPHYLAXIS AGAINST GRAFT VERSUS HOST DISEASE
     Dosage: AS USED: 20 MG/KG
     Route: 048
  5. METHYLPREDNISOLONE [Concomitant]
     Indication: PROPHYLAXIS AGAINST GRAFT VERSUS HOST DISEASE
     Dosage: TOTAL DAILY DOSE: 1 MG/KG
     Route: 042
  6. ANTIBIOTICS [Concomitant]
  7. NEUPOGEN [Concomitant]

REACTIONS (6)
  - ACUTE GRAFT VERSUS HOST DISEASE [None]
  - ACUTE GRAFT VERSUS HOST DISEASE IN INTESTINE [None]
  - DIARRHOEA HAEMORRHAGIC [None]
  - HYPERTENSION [None]
  - KLEBSIELLA SEPSIS [None]
  - STREPTOCOCCAL SEPSIS [None]
